FAERS Safety Report 4516501-1 (Version None)
Quarter: 2004Q4

REPORT INFORMATION
  Report Type: 
  Country: None (occurrence: None)
  Receive Date: 20041012
  Receipt Date: 20040615
  Transmission Date: 20050328
  Serious: No
  Sender: FDA-Public Use
  Company Number: A03200401916

PATIENT
  Sex: Male

DRUGS (6)
  1. UROXATRAL [Suspect]
     Indication: URINARY RETENTION
     Dosage: 10 MG, OD - ORAL
     Route: 048
     Dates: start: 20040201
  2. WARFARIN SODIUM [Concomitant]
  3. DIGOXIN [Concomitant]
  4. GEMFIBROZIL [Concomitant]
  5. METOPROLOL SUCCINATE [Concomitant]
  6. LOSARTAN + HYDROCHLOROTHIAZIDE [Concomitant]

REACTIONS (2)
  - FLATULENCE [None]
  - LOOSE STOOLS [None]
